FAERS Safety Report 10224092 (Version 1)
Quarter: 2014Q2

REPORT INFORMATION
  Report Type: Spontaneous
  Country: US (occurrence: US)
  Receive Date: 20140609
  Receipt Date: 20140609
  Transmission Date: 20141212
  Serious: No
  Sender: FDA-Public Use
  Company Number: US-DRREDDYS-USA/USA/14/0039457

PATIENT
  Age: 8 Year
  Sex: Male

DRUGS (8)
  1. FEXOFENADINE HCL  OTC [Suspect]
     Indication: SEASONAL ALLERGY
     Route: 065
  2. CETIRIZINE [Suspect]
     Indication: SEASONAL ALLERGY
  3. CETIRIZINE [Suspect]
  4. DIPHENHYDRAMINE [Suspect]
     Indication: SEASONAL ALLERGY
     Route: 065
  5. DIPHENHYDRAMINE [Suspect]
     Route: 065
  6. DIPHENHYDRAMINE [Suspect]
     Route: 065
  7. LORATADINE [Suspect]
     Indication: SEASONAL ALLERGY
     Route: 065
  8. MONTELUKAST [Concomitant]
     Indication: ASTHMA

REACTIONS (1)
  - Chronic spontaneous urticaria [Recovering/Resolving]
